FAERS Safety Report 21640857 (Version 2)
Quarter: 2023Q1

REPORT INFORMATION
  Report Type: Report from Study
  Country: US (occurrence: US)
  Receive Date: 20221125
  Receipt Date: 20230308
  Transmission Date: 20230418
  Serious: Yes (Other)
  Sender: FDA-Public Use
  Company Number: US-ABBVIE-4213535

PATIENT
  Sex: Female
  Weight: 59.874 kg

DRUGS (5)
  1. IBRUTINIB [Suspect]
     Active Substance: IBRUTINIB
     Indication: Chronic lymphocytic leukaemia
     Dosage: FORM STRENGTH: 420 MG
     Route: 048
  2. menthol 5 mg lozenge [Concomitant]
     Indication: Product used for unknown indication
     Dosage: TAKE 1 LOZENGE BY MOUTH AS NEEDED./FORM STRENGTH: 5 MG
     Route: 048
  3. CEPHALEXIN [Concomitant]
     Active Substance: CEPHALEXIN
     Indication: Product used for unknown indication
     Dosage: TIME INTERVAL: 0.33333333 DAYS: TAKE ONE CAPSULE (500 MG TOTAL) BY MOUTH 3 (THREE) TIMES DAILY FO...
     Route: 048
  4. FLUTICASONE PROPIONATE [Concomitant]
     Active Substance: FLUTICASONE PROPIONATE
     Indication: Hypersensitivity
     Dosage: ADMINISTER TWO SPRAYS INTO EACH NOSTRIL DAILY AS NEEDED FOR ALLERGIES.
  5. DULCOLAX NOS [Concomitant]
     Active Substance: BISACODYL OR DOCUSATE SODIUM
     Indication: Constipation
     Dosage: TAKE ONE TABLET TO THREE TABLETS (5-15 MG TOTAL) BY MOUTH DAILY AS NEEDED FOR CONSTIPATION.
     Route: 048

REACTIONS (5)
  - Hip surgery [Recovering/Resolving]
  - Peripheral swelling [Unknown]
  - Fall [Unknown]
  - Hip fracture [Unknown]
  - Joint swelling [Unknown]

NARRATIVE: CASE EVENT DATE: 20220101
